FAERS Safety Report 16186827 (Version 1)
Quarter: 2019Q2

REPORT INFORMATION
  Report Type: Spontaneous
  Country: US (occurrence: US)
  Receive Date: 20190411
  Receipt Date: 20190411
  Transmission Date: 20190711
  Serious: Yes (Hospitalization)
  Sender: FDA-Public Use
  Company Number: US-NOVOPROD-649508

PATIENT
  Age: 66 Year
  Sex: Male
  Weight: 136.96 kg

DRUGS (3)
  1. OZEMPIC [Suspect]
     Active Substance: SEMAGLUTIDE
     Dosage: 1 MG, QW
     Route: 058
     Dates: start: 20180810, end: 20181012
  2. OZEMPIC [Suspect]
     Active Substance: SEMAGLUTIDE
     Indication: TYPE 2 DIABETES MELLITUS
     Dosage: 0.25 MG, QW
     Route: 058
     Dates: start: 20180509, end: 20180606
  3. OZEMPIC [Suspect]
     Active Substance: SEMAGLUTIDE
     Dosage: 0.5 MG, QW
     Route: 058
     Dates: start: 20180606, end: 20180810

REACTIONS (4)
  - Retroperitoneal mass [Unknown]
  - Bile duct stone [Unknown]
  - Obstructive pancreatitis [Recovering/Resolving]
  - Pancreatic pseudocyst [Unknown]

NARRATIVE: CASE EVENT DATE: 2018
